FAERS Safety Report 4846362-2 (Version None)
Quarter: 2005Q4

REPORT INFORMATION
  Report Type: 
  Country: None (occurrence: None)
  Receive Date: 20051206
  Receipt Date: 20051201
  Transmission Date: 20060501
  Serious: Yes (Death)
  Sender: FDA-Public Use
  Company Number: US-BRISTOL-MYERS SQUIBB COMPANY-13201868

PATIENT
  Sex: Female

DRUGS (2)
  1. TAXOL [Suspect]
  2. PARAPLATIN [Suspect]

REACTIONS (1)
  - DEATH [None]
